FAERS Safety Report 8935787 (Version 1)
Quarter: 2012Q4

REPORT INFORMATION
  Report Type: Spontaneous
  Country: US (occurrence: None)
  Receive Date: 20121121
  Receipt Date: 20121121
  Transmission Date: 20130627
  Serious: Yes (Other)
  Sender: FDA-Public Use
  Company Number: 2012ST000132

PATIENT
  Age: 57 Year
  Sex: Male
  Weight: 113.4 kg

DRUGS (8)
  1. GLUMETZA [Suspect]
     Indication: TYPE II DIABETES
     Route: 048
     Dates: start: 201202
  2. JANUMET [Suspect]
  3. GLIPIZIDE [Concomitant]
  4. BYETTA [Concomitant]
  5. LISINOPRIL [Concomitant]
  6. METOPROLOL [Concomitant]
  7. FOLIC ACID [Concomitant]
  8. PROVASTATIN [Concomitant]

REACTIONS (3)
  - Coronary artery occlusion [None]
  - Loss of consciousness [None]
  - Diarrhoea [None]
